FAERS Safety Report 4386255-0 (Version None)
Quarter: 2004Q2

REPORT INFORMATION
  Report Type: 
  Country: None (occurrence: None)
  Receive Date: 20040623
  Receipt Date: 20040608
  Transmission Date: 20050107
  Serious: Yes (Other)
  Sender: FDA-Public Use
  Company Number: JP-JNJFOC-20040602715

PATIENT
  Age: 52 Year

DRUGS (3)
  1. FENTANYL [Suspect]
     Dosage: SEE IMAGE
     Route: 062
  2. TEGAFUR (TEGAFUR) [Suspect]
  3. DEXAMETHASONE [Concomitant]

REACTIONS (5)
  - ANXIETY [None]
  - MIOSIS [None]
  - RENAL IMPAIRMENT [None]
  - RESTLESSNESS [None]
  - SOMNOLENCE [None]
